FAERS Safety Report 12534865 (Version 4)
Quarter: 2018Q3

REPORT INFORMATION
  Report Type: Report from Study
  Country: JP (occurrence: JP)
  Receive Date: 20160707
  Receipt Date: 20180920
  Transmission Date: 20181010
  Serious: Yes (Other)
  Sender: FDA-Public Use
  Company Number: JP-ROCHE-1749388

PATIENT
  Age: 53 Year
  Sex: Female
  Weight: 64 kg

DRUGS (6)
  1. VEMURAFENIB. [Suspect]
     Active Substance: VEMURAFENIB
     Indication: MALIGNANT MELANOMA
     Route: 048
     Dates: start: 20160525, end: 20160610
  2. VEMURAFENIB. [Suspect]
     Active Substance: VEMURAFENIB
     Indication: MALIGNANT MELANOMA
     Route: 048
     Dates: start: 20160316, end: 20160413
  3. VEMURAFENIB. [Suspect]
     Active Substance: VEMURAFENIB
     Indication: MALIGNANT MELANOMA
     Dosage: INTURRUPTED IN 2016
     Route: 048
     Dates: start: 20160713
  4. VEMURAFENIB. [Suspect]
     Active Substance: VEMURAFENIB
     Indication: MALIGNANT MELANOMA
     Route: 048
     Dates: start: 20160518, end: 20160524
  5. VEMURAFENIB. [Suspect]
     Active Substance: VEMURAFENIB
     Indication: MALIGNANT MELANOMA
     Route: 048
     Dates: start: 20160611, end: 20160712
  6. VEMURAFENIB. [Suspect]
     Active Substance: VEMURAFENIB
     Dosage: ON 27/SEP/2016, SHE RECEIVED MOST RECENT DOSE OF VEMURAFENIB
     Route: 048
     Dates: start: 20160917

REACTIONS (2)
  - Hepatic function abnormal [Recovered/Resolved]
  - Radiation skin injury [Recovered/Resolved]

NARRATIVE: CASE EVENT DATE: 20160323
